FAERS Safety Report 10905860 (Version 2)
Quarter: 2015Q1

REPORT INFORMATION
  Report Type: Spontaneous
  Country: DE (occurrence: None)
  Receive Date: 20150213
  Receipt Date: 20150303
  Transmission Date: 20150721
  Serious: Yes (Hospitalization)
  Sender: FDA-Public Use
  Company Number: GAM-030-15-DE

PATIENT
  Age: 68 Year
  Sex: Male

DRUGS (8)
  1. PREDNISOLONE. [Concomitant]
     Active Substance: PREDNISOLONE
  2. OCTAGAM IMMUNE GLOBULIN (HUMAN) [Suspect]
     Active Substance: HUMAN IMMUNOGLOBULIN G
     Indication: IMMUNODEFICIENCY
     Dosage: 1X 4/WEEKS
     Route: 042
     Dates: start: 20141217, end: 20150114
  3. CYCLOPHOSPHAMIDE. [Concomitant]
     Active Substance: CYCLOPHOSPHAMIDE
  4. FENTANYL. [Concomitant]
     Active Substance: FENTANYL
  5. DOXORUBICIN [Concomitant]
     Active Substance: DOXORUBICIN
  6. LIPEGFILGRASTIM [Concomitant]
     Active Substance: LIPEGFILGRASTIM
  7. VINCRISTINE [Concomitant]
     Active Substance: VINCRISTINE
  8. RITUXIMAB [Concomitant]
     Active Substance: RITUXIMAB

REACTIONS (2)
  - Back pain [None]
  - Cerebrovascular accident [None]

NARRATIVE: CASE EVENT DATE: 20141217
